FAERS Safety Report 7519718-7 (Version None)
Quarter: 2011Q2

REPORT INFORMATION
  Report Type: 
  Country: None (occurrence: None)
  Receive Date: 20110602
  Receipt Date: 20110518
  Transmission Date: 20111010
  Serious: Yes (Hospitalization)
  Sender: FDA-Public Use
  Company Number: GB-WATSON-2011-06744

PATIENT
  Age: 5 Year
  Sex: Male

DRUGS (8)
  1. GENTAMICIN SULFATE [Suspect]
     Indication: PNEUMONIA MYCOPLASMAL
     Dosage: UNK
  2. CLOBAZAM [Concomitant]
     Indication: PRODUCT USED FOR UNKNOWN INDICATION
  3. PIPERACILLIN [Suspect]
     Indication: PNEUMONIA MYCOPLASMAL
     Dosage: UNK
  4. CEFOTAXIME [Suspect]
     Indication: PNEUMONIA MYCOPLASMAL
     Dosage: UNK
  5. ERYTHROMYCIN [Suspect]
     Indication: PNEUMONIA MYCOPLASMAL
     Dosage: UNK
  6. PHENYTOIN [Suspect]
     Indication: STATUS EPILEPTICUS
     Dosage: UNK
  7. VALPROATE SODIUM [Concomitant]
     Indication: PRODUCT USED FOR UNKNOWN INDICATION
  8. LAMOTRIGINE [Suspect]
     Indication: CONVULSION
     Dosage: UNK

REACTIONS (10)
  - APHASIA [None]
  - LEARNING DISORDER [None]
  - STATUS EPILEPTICUS [None]
  - DYSTONIA [None]
  - BRAIN OEDEMA [None]
  - COGNITIVE DISORDER [None]
  - MOVEMENT DISORDER [None]
  - HYPOTONIA [None]
  - AKINESIA [None]
  - ATROPHY [None]
